FAERS Safety Report 15538211 (Version 1)
Quarter: 2018Q4

REPORT INFORMATION
  Report Type: Spontaneous
  Country: PL (occurrence: PL)
  Receive Date: 20181022
  Receipt Date: 20181022
  Transmission Date: 20190205
  Serious: Yes (Death, Other)
  Sender: FDA-Public Use
  Company Number: PL-PFM-2018-12543

PATIENT

DRUGS (4)
  1. PRIDINOL [Suspect]
     Active Substance: PRIDINOL
     Indication: COMPLETED SUICIDE
  2. PRIDINOL [Suspect]
     Active Substance: PRIDINOL
     Indication: TOXICITY TO VARIOUS AGENTS
     Route: 065
  3. PROPRANOLOL HYDROCHLORIDE. [Suspect]
     Active Substance: PROPRANOLOL HYDROCHLORIDE
     Indication: PRODUCT USED FOR UNKNOWN INDICATION
     Dosage: UNKNOWN DOSE
     Route: 065
  4. OLANZAPINE. [Suspect]
     Active Substance: OLANZAPINE
     Indication: PRODUCT USED FOR UNKNOWN INDICATION
     Dosage: UNKNOWN DOSE
     Route: 065

REACTIONS (4)
  - Product administered to patient of inappropriate age [Unknown]
  - Toxicity to various agents [Fatal]
  - Off label use [Unknown]
  - Completed suicide [Fatal]
